FAERS Safety Report 7896551-8 (Version None)
Quarter: 2011Q4

REPORT INFORMATION
  Report Type: 
  Country: None (occurrence: None)
  Receive Date: 20111106
  Receipt Date: 20111102
  Transmission Date: 20120403
  Serious: No
  Sender: FDA-Public Use
  Company Number: US-AMGEN-USASP2011045580

PATIENT
  Age: 43 Year
  Sex: Female
  Weight: 52.154 kg

DRUGS (10)
  1. MAXALT                             /01406501/ [Concomitant]
     Dosage: UNK
  2. SYNTHROID [Concomitant]
     Dosage: UNK
  3. CLONAZEPAM [Concomitant]
     Dosage: UNK
  4. ELMIRON [Concomitant]
     Dosage: UNK
  5. LETROZOLE [Concomitant]
     Dosage: UNK
  6. RHINOCORT [Concomitant]
     Dosage: UNK
  7. LYRICA [Concomitant]
     Dosage: UNK
  8. ENBREL [Suspect]
     Indication: ENDOMETRIOSIS
  9. ENBREL [Suspect]
     Indication: PSORIATIC ARTHROPATHY
     Dosage: 50 MG, WEEKLY
     Dates: start: 20110601
  10. TOPIRAMATE [Concomitant]
     Dosage: UNK

REACTIONS (5)
  - DYSPNOEA [None]
  - WEIGHT INCREASED [None]
  - THYROID DISORDER [None]
  - DYSPHONIA [None]
  - DIABETES MELLITUS [None]
